FAERS Safety Report 9790015 (Version 1)
Quarter: 2013Q4

REPORT INFORMATION
  Report Type: Spontaneous
  Country: US (occurrence: None)
  Receive Date: 20131230
  Receipt Date: 20131230
  Transmission Date: 20140711
  Serious: Yes (Hospitalization, Disabling)
  Sender: FDA-Public Use
  Company Number: None

PATIENT
  Age: 35 Year
  Sex: Female
  Weight: 90.72 kg

DRUGS (1)
  1. ALPRAZOLAM [Suspect]
     Indication: ANXIETY
     Dosage: 3-4 MG A DAY FOUR TIMES DAILY TAKEN BY MOUTH
     Route: 048

REACTIONS (3)
  - Drug dependence [None]
  - Mental disorder [None]
  - Pain [None]
